FAERS Safety Report 19139905 (Version 2)
Quarter: 2021Q2

REPORT INFORMATION
  Report Type: Spontaneous
  Country: JP (occurrence: JP)
  Receive Date: 20210415
  Receipt Date: 20210513
  Transmission Date: 20210717
  Serious: Yes (Other)
  Sender: FDA-Public Use
  Company Number: JP-UCBSA-2021016620

PATIENT
  Age: 15 Year
  Sex: Male

DRUGS (10)
  1. CLONAZEPAM. [Suspect]
     Active Substance: CLONAZEPAM
     Indication: GENERALISED TONIC-CLONIC SEIZURE
     Dosage: 1.5 MILLIGRAM, DAILY
  2. CLONAZEPAM. [Suspect]
     Active Substance: CLONAZEPAM
     Indication: MYOCLONIC EPILEPSY
  3. VALPROIC ACID. [Suspect]
     Active Substance: VALPROIC ACID
     Indication: GENERALISED TONIC-CLONIC SEIZURE
     Dosage: 800 MILLIGRAM, DAILY
  4. PIRACETAM [Suspect]
     Active Substance: PIRACETAM
     Indication: GENERALISED TONIC-CLONIC SEIZURE
     Dosage: 21 GRAM DAILY
  5. PERAMPANEL [Suspect]
     Active Substance: PERAMPANEL
     Indication: GENERALISED TONIC-CLONIC SEIZURE
     Dosage: 10 MILLIGRAM, DAILY
  6. PERAMPANEL [Suspect]
     Active Substance: PERAMPANEL
     Indication: MYOCLONIC EPILEPSY
  7. E KEPPRA [Suspect]
     Active Substance: LEVETIRACETAM
     Indication: GENERALISED TONIC-CLONIC SEIZURE
     Dosage: 1000 MILLIGRAM, DAILY
     Route: 048
  8. E KEPPRA [Suspect]
     Active Substance: LEVETIRACETAM
     Indication: MYOCLONIC EPILEPSY
  9. PIRACETAM [Suspect]
     Active Substance: PIRACETAM
     Indication: MYOCLONIC EPILEPSY
  10. VALPROIC ACID. [Suspect]
     Active Substance: VALPROIC ACID
     Indication: MYOCLONIC EPILEPSY

REACTIONS (2)
  - Multiple-drug resistance [Unknown]
  - Generalised tonic-clonic seizure [Recovering/Resolving]
